FAERS Safety Report 24251667 (Version 1)
Quarter: 2024Q3

REPORT INFORMATION
  Report Type: Spontaneous
  Country: TR (occurrence: TR)
  Receive Date: 20240827
  Receipt Date: 20240827
  Transmission Date: 20241017
  Serious: Yes (Other)
  Sender: NOVO NORDISK
  Company Number: TR-NOVOPROD-1271778

PATIENT
  Sex: Male

DRUGS (1)
  1. INSULIN ASPART\INSULIN DEGLUDEC [Suspect]
     Active Substance: INSULIN ASPART\INSULIN DEGLUDEC
     Indication: Product used for unknown indication
     Dosage: 90 IU, QD (30 IU IN THE MORNING, 60 IU IN THE EVENING)

REACTIONS (3)
  - Neoplasm malignant [Unknown]
  - Acne pustular [Unknown]
  - Limb injury [Unknown]
